FAERS Safety Report 8064327-7 (Version None)
Quarter: 2012Q1

REPORT INFORMATION
  Report Type: 
  Country: None (occurrence: None)
  Receive Date: 20120123
  Receipt Date: 20120116
  Transmission Date: 20120608
  Serious: Yes (Hospitalization)
  Sender: FDA-Public Use
  Company Number: JP-EISAI INC-E2090-01925-SPO-JP

PATIENT
  Sex: Female

DRUGS (4)
  1. ZONISAMIDE [Suspect]
     Indication: DIZZINESS
     Dosage: 200 MG
     Route: 048
     Dates: start: 20101126, end: 20101210
  2. ZOMIG [Concomitant]
     Dosage: UNKNOWN
  3. DEPAS [Concomitant]
     Dosage: UNKNOWN
  4. ACETAMINOPHEN [Concomitant]
     Dosage: UNKNOWN

REACTIONS (1)
  - STEVENS-JOHNSON SYNDROME [None]
